FAERS Safety Report 5932348-3 (Version None)
Quarter: 2008Q4

REPORT INFORMATION
  Report Type: 
  Country: None (occurrence: None)
  Receive Date: 20081023
  Receipt Date: 20081010
  Transmission Date: 20090506
  Serious: Yes (Hospitalization)
  Sender: FDA-Public Use
  Company Number: 2008BI027253

PATIENT
  Age: 37 Year
  Sex: Female
  Weight: 58.9676 kg

DRUGS (11)
  1. TYSABRI [Suspect]
     Indication: MULTIPLE SCLEROSIS
     Dosage: 300 MG; QM; IV
     Route: 042
     Dates: start: 20080418
  2. BACLOFEN [Concomitant]
  3. OXYBUTININ [Concomitant]
  4. LORTAB [Concomitant]
  5. PREGABALIN [Concomitant]
  6. PAROXETINE HCL [Concomitant]
  7. METHYLPHENIDATE HCL [Concomitant]
  8. ALPRAZOLAM [Concomitant]
  9. TIZANIDINE HCL [Concomitant]
  10. AVONEX [Concomitant]
  11. CHRONIC SYSTEMIC CORTICOSTEROIDS [Concomitant]

REACTIONS (6)
  - ANAEMIA [None]
  - DECUBITUS ULCER [None]
  - FEMUR FRACTURE [None]
  - IMMOBILE [None]
  - JOINT DISLOCATION [None]
  - SENSORY DISTURBANCE [None]
